FAERS Safety Report 20460164 (Version 1)
Quarter: 2022Q1

REPORT INFORMATION
  Report Type: Report from Study
  Country: US (occurrence: US)
  Receive Date: 20220211
  Receipt Date: 20220211
  Transmission Date: 20220423
  Serious: Yes (Hospitalization)
  Sender: FDA-Public Use
  Company Number: US-JAZZ-2021-US-008242

PATIENT
  Age: 7 Year
  Sex: Male
  Weight: 28.9 kg

DRUGS (28)
  1. ASPARAGINASE ERWINIA CHRYSANTHEMI [Suspect]
     Active Substance: ASPARAGINASE ERWINIA CHRYSANTHEMI
     Indication: Acute lymphocytic leukaemia
     Dosage: 37.5 MILLIGRAM/SQ. METER, 3XWEEKLY PER 2W COURSE
     Route: 030
     Dates: start: 20201113, end: 20210430
  2. ASPARAGINASE ERWINIA CHRYSANTHEMI [Suspect]
     Active Substance: ASPARAGINASE ERWINIA CHRYSANTHEMI
     Dosage: 37.5 MILLIGRAM/SQ. METER 3XWEEKLY PER 2W COURSE
     Route: 030
     Dates: start: 20210503, end: 20210510
  3. ASPARAGINASE ERWINIA CHRYSANTHEMI [Suspect]
     Active Substance: ASPARAGINASE ERWINIA CHRYSANTHEMI
     Dosage: 37.5 MILLIGRAM/SQ. METER, 3XWEEKLY PER 2W COURSE
     Route: 030
     Dates: end: 20210728
  4. METHOTREXATE [Suspect]
     Active Substance: METHOTREXATE
     Dosage: 12 MILLIGRAM, SINGLE
     Route: 018
     Dates: start: 20210428, end: 20210428
  5. METHOTREXATE [Suspect]
     Active Substance: METHOTREXATE
     Dosage: 12 MILLIGRAM, SINGLE
     Route: 037
     Dates: start: 20210608, end: 20210608
  6. PROPOFOL [Concomitant]
     Active Substance: PROPOFOL
     Dosage: 100 MILLIGRAM, SINGLE
     Route: 042
     Dates: start: 20210428, end: 20210428
  7. ZOFRAN [Concomitant]
     Active Substance: ONDANSETRON HYDROCHLORIDE
     Dosage: 4 MILLIGRAM, SINGLE
     Route: 042
     Dates: start: 20210428, end: 20210428
  8. ZOFRAN [Concomitant]
     Active Substance: ONDANSETRON HYDROCHLORIDE
     Dosage: 4 MILLIGRAM, Q 6H PRN
     Route: 048
     Dates: start: 20200814
  9. VERSED [Concomitant]
     Active Substance: MIDAZOLAM HYDROCHLORIDE
     Dosage: 2 MILLIGRAM, SINGLE
     Route: 042
     Dates: start: 20210428, end: 20210428
  10. VINCRISTINE [Concomitant]
     Active Substance: VINCRISTINE
     Dosage: 1.55 MILLIGRAM, SINGLE
     Route: 042
     Dates: start: 20210428, end: 20210428
  11. SODIUM CHLORIDE [Concomitant]
     Active Substance: SODIUM CHLORIDE
     Dosage: 0.9% BOLUS, 596 MILLILITER, SINGLE
     Route: 042
     Dates: start: 20210428, end: 20210428
  12. SODIUM CHLORIDE [Concomitant]
     Active Substance: SODIUM CHLORIDE
     Dosage: 0.9% BOLUS, 582 MILLILITER, SINGLE
     Route: 042
     Dates: start: 20210430, end: 20210430
  13. SODIUM CHLORIDE [Concomitant]
     Active Substance: SODIUM CHLORIDE
     Dosage: 5 MILLILITER, PRN
     Route: 042
     Dates: start: 20200922
  14. DOXORUBICIN [Concomitant]
     Active Substance: DOXORUBICIN
     Dosage: 26 MILLIGRAM, SINGLE
     Route: 042
     Dates: start: 20210428, end: 20210428
  15. DEXAMETHASONE [Concomitant]
     Active Substance: DEXAMETHASONE
     Dosage: 5.25 MILLIGRAM, BID
     Route: 048
     Dates: start: 20210428
  16. SYNERA [Concomitant]
     Active Substance: LIDOCAINE\TETRACAINE
     Dosage: 1 PATCH, SINGLE
     Route: 061
     Dates: start: 20210430, end: 20210430
  17. SYNERA [Concomitant]
     Active Substance: LIDOCAINE\TETRACAINE
     Dosage: 1 DOSAGE FORM
     Route: 061
     Dates: start: 20210503, end: 20210503
  18. ATIVAN [Concomitant]
     Active Substance: LORAZEPAM
     Dosage: 1 MILLIGRAM, SINGLE
     Route: 042
     Dates: start: 20210430, end: 20210430
  19. ROXICODONE [Concomitant]
     Active Substance: OXYCODONE HYDROCHLORIDE
     Dosage: 2.5 MILLIGRAM, Q 4HR PRN
     Route: 048
     Dates: start: 20200816
  20. HEPARIN [Concomitant]
     Active Substance: HEPARIN SODIUM
     Dosage: 10 UNITS/ML, 4 MILLILITER, PRN
     Route: 042
     Dates: start: 20200814
  21. DEVICE\XYLITOL [Concomitant]
     Active Substance: DEVICE\XYLITOL
     Dosage: 5 MILLILITER, BID SWISH + SPIT
     Dates: start: 20200814
  22. SENOKOT [Concomitant]
     Active Substance: SENNOSIDES
     Dosage: 8.6 MILLIGRAM, QD PRN
     Route: 048
     Dates: start: 20200817
  23. MIRALAX [Concomitant]
     Active Substance: POLYETHYLENE GLYCOL 3350
     Dosage: 17 GRAM, BID
     Route: 048
     Dates: start: 20200818
  24. LACTULOSE [Concomitant]
     Active Substance: LACTULOSE
     Dosage: 6.67 MILLIGRAM, QD PRN
     Route: 048
     Dates: start: 20200818
  25. EMLA [Concomitant]
     Active Substance: LIDOCAINE\PRILOCAINE
     Dosage: 1 APPLICATION, PRN
     Route: 061
     Dates: start: 20200820
  26. DIPHENHYDRAMINE HYDROCHLORIDE\LIDOCAINE HYDROCHLORIDE\NYSTATIN [Concomitant]
     Active Substance: DIPHENHYDRAMINE HYDROCHLORIDE\LIDOCAINE HYDROCHLORIDE\NYSTATIN
     Dosage: 5 MILLILITER, QD SWISH + SPIT
     Dates: start: 20200820
  27. BACTRIM [Concomitant]
     Active Substance: SULFAMETHOXAZOLE\TRIMETHOPRIM
     Dosage: 400 MILLIGRAM, BID - SA, SU
     Route: 048
     Dates: start: 20200825
  28. NEURONTIN [Concomitant]
     Active Substance: GABAPENTIN
     Dosage: 100 MILLIGRAM, QD
     Route: 048
     Dates: start: 20200825

REACTIONS (6)
  - Hyperammonaemia [Recovered/Resolved]
  - Neurotoxicity [Recovered/Resolved]
  - Hyperammonaemia [Recovered/Resolved]
  - Hyperammonaemia [Recovered/Resolved]
  - Hyperammonaemia [Recovered/Resolved]
  - Hyperammonaemia [Recovered/Resolved]

NARRATIVE: CASE EVENT DATE: 20210505
